FAERS Safety Report 9233905 (Version 1)
Quarter: 2013Q2

REPORT INFORMATION
  Report Type: Spontaneous
  Country: US (occurrence: US)
  Receive Date: 20130416
  Receipt Date: 20130416
  Transmission Date: 20140414
  Serious: No
  Sender: FDA-Public Use
  Company Number: US-PFIZER INC-2013117710

PATIENT
  Sex: Female

DRUGS (2)
  1. PRISTIQ [Suspect]
     Dosage: UNK
     Dates: start: 201304
  2. S-ADENOSYL-L-METHIONINE [Concomitant]
     Dosage: UNK

REACTIONS (3)
  - Anxiety [Unknown]
  - Irritability [Unknown]
  - Anger [Unknown]
